FAERS Safety Report 5281714-0 (Version None)
Quarter: 2007Q1

REPORT INFORMATION
  Report Type: 
  Country: None (occurrence: None)
  Receive Date: 20070330
  Receipt Date: 20070326
  Transmission Date: 20070707
  Serious: Yes (Hospitalization)
  Sender: FDA-Public Use
  Company Number: US-GLAXOSMITHKLINE-A0636598A

PATIENT
  Age: 42 Year
  Sex: Female
  Weight: 83.6 kg

DRUGS (1)
  1. LAPATINIB [Suspect]
     Dosage: 750MG TWICE PER DAY
     Route: 048

REACTIONS (1)
  - OEDEMA [None]
